FAERS Safety Report 7715878-3 (Version None)
Quarter: 2011Q3

REPORT INFORMATION
  Report Type: 
  Country: None (occurrence: None)
  Receive Date: 20110829
  Receipt Date: 20110829
  Transmission Date: 20111222
  Serious: No
  Sender: FDA-Public Use
  Company Number: None

PATIENT
  Age: 81 Year
  Sex: Male
  Weight: 78.925 kg

DRUGS (1)
  1. CRESTOR [Suspect]
     Indication: MYALGIA
     Dosage: 5MG
     Route: 048

REACTIONS (3)
  - PAIN IN EXTREMITY [None]
  - MUSCLE SPASMS [None]
  - LIMB DISCOMFORT [None]
